FAERS Safety Report 6268963-X (Version None)
Quarter: 2009Q3

REPORT INFORMATION
  Report Type: 
  Country: None (occurrence: None)
  Receive Date: 20090715
  Receipt Date: 20090709
  Transmission Date: 20100115
  Serious: No
  Sender: FDA-Public Use
  Company Number: US-B.I. PHARMACEUTICALS,INC./RIDGEFIELD-2009-BP-07101BP

PATIENT
  Sex: Female

DRUGS (3)
  1. SPIRIVA [Suspect]
     Indication: EMPHYSEMA
     Dosage: 18 MCG
     Route: 055
     Dates: start: 20080301
  2. DIOVAN HCT [Concomitant]
     Indication: HYPERTENSION
  3. ADVAIR HFA [Concomitant]
     Indication: EMPHYSEMA
     Route: 055

REACTIONS (1)
  - INFLUENZA [None]
